FAERS Safety Report 7762574-2 (Version None)
Quarter: 2011Q3

REPORT INFORMATION
  Report Type: 
  Country: None (occurrence: None)
  Receive Date: 20110920
  Receipt Date: 20110916
  Transmission Date: 20111222
  Serious: Yes (Hospitalization)
  Sender: FDA-Public Use
  Company Number: US-GLAXOSMITHKLINE-A0808375A

PATIENT
  Age: 55 Year
  Sex: Female
  Weight: 150 kg

DRUGS (6)
  1. PROTONIX [Concomitant]
  2. ZYLOPRIM [Concomitant]
  3. AVANDAMET [Suspect]
     Indication: DIABETES MELLITUS
     Route: 048
     Dates: start: 20040622, end: 20050701
  4. AVANDIA [Suspect]
     Indication: DIABETES MELLITUS
     Dosage: 4MG TWICE PER DAY
     Route: 048
     Dates: start: 20050701, end: 20070326
  5. PREMARIN [Concomitant]
  6. GLUCOTROL [Concomitant]

REACTIONS (5)
  - CORONARY ARTERY DISEASE [None]
  - WEIGHT INCREASED [None]
  - CARDIAC FAILURE CONGESTIVE [None]
  - HYPERLIPIDAEMIA [None]
  - ANGINA UNSTABLE [None]
